FAERS Safety Report 5236415-1 (Version None)
Quarter: 2007Q1

REPORT INFORMATION
  Report Type: 
  Country: None (occurrence: None)
  Receive Date: 20061208
  Receipt Date: 20060215
  Transmission Date: 20070707
  Serious: Yes (Other)
  Sender: FDA-Public Use
  Company Number: 2003UW16594

PATIENT
  Age: 60 Year
  Sex: Female
  Weight: 61.2356 kg

DRUGS (8)
  1. CRESTOR [Suspect]
     Indication: BLOOD CHOLESTEROL INCREASED
     Dosage: 10 MG DAILY PO
     Route: 048
     Dates: start: 20031201
  2. GUAIFENESIN [Concomitant]
  3. XANAX [Concomitant]
  4. DILAUDID [Concomitant]
  5. FENTANYL [Concomitant]
  6. ZOLOFT [Concomitant]
  7. SOMA [Concomitant]
  8. MORPHINE [Concomitant]

REACTIONS (14)
  - BALANCE DISORDER [None]
  - DIPLOPIA [None]
  - DYSPHONIA [None]
  - GAIT DISTURBANCE [None]
  - GASTRITIS [None]
  - HEADACHE [None]
  - INSOMNIA [None]
  - NAUSEA [None]
  - OEDEMA PERIPHERAL [None]
  - PRURITUS [None]
  - RHINORRHOEA [None]
  - SKIN DISORDER [None]
  - STOMACH DISCOMFORT [None]
  - VARICOSE VEIN [None]
